FAERS Safety Report 17765239 (Version 6)
Quarter: 2021Q1

REPORT INFORMATION
  Report Type: Spontaneous
  Country: US (occurrence: US)
  Receive Date: 20200511
  Receipt Date: 20210322
  Transmission Date: 20210419
  Serious: Yes (Other)
  Sender: FDA-Public Use
  Company Number: US-PFIZER INC-2020187338

PATIENT
  Sex: Female

DRUGS (1)
  1. LORBRENA [Suspect]
     Active Substance: LORLATINIB
     Indication: NON-SMALL CELL LUNG CANCER METASTATIC
     Dosage: UNK

REACTIONS (8)
  - Blood cholesterol increased [Unknown]
  - Hallucination [Unknown]
  - Neuropathy peripheral [Unknown]
  - Skin lesion [Unknown]
  - Neoplasm progression [Unknown]
  - Fatigue [Unknown]
  - Oedema [Unknown]
  - Cognitive disorder [Unknown]
